FAERS Safety Report 15599923 (Version 3)
Quarter: 2019Q1

REPORT INFORMATION
  Report Type: Spontaneous
  Country: HU (occurrence: HU)
  Receive Date: 20181108
  Receipt Date: 20190124
  Transmission Date: 20190417
  Serious: Yes (Other)
  Sender: FDA-Public Use
  Company Number: HU-BAXTER-2018BAX027088

PATIENT
  Age: 69 Year
  Sex: Female

DRUGS (6)
  1. COLCHICIN [Concomitant]
     Active Substance: COLCHICINE
     Indication: GLOMERULONEPHRITIS RAPIDLY PROGRESSIVE
     Route: 065
  2. ENDOXAN 1G POR OLDATOS INJEKCI?HOZ [Suspect]
     Active Substance: CYCLOPHOSPHAMIDE
     Indication: MICROSCOPIC POLYANGIITIS
     Route: 065
     Dates: start: 2018
  3. AZATHIOPRINE. [Suspect]
     Active Substance: AZATHIOPRINE
     Indication: MICROSCOPIC POLYANGIITIS
     Dosage: UNK
     Route: 065
  4. ENDOXAN 1G POR OLDATOS INJEKCI?HOZ [Suspect]
     Active Substance: CYCLOPHOSPHAMIDE
     Indication: GLOMERULONEPHRITIS RAPIDLY PROGRESSIVE
     Route: 065
     Dates: start: 2011
  5. AZATHIOPRINE. [Suspect]
     Active Substance: AZATHIOPRINE
     Indication: GLOMERULONEPHRITIS RAPIDLY PROGRESSIVE
     Route: 065
     Dates: start: 2011
  6. COLCHICIN [Concomitant]
     Active Substance: COLCHICINE
     Indication: MICROSCOPIC POLYANGIITIS
     Dosage: UNK
     Route: 065

REACTIONS (19)
  - Multiple organ dysfunction syndrome [Recovering/Resolving]
  - Mucosal haemorrhage [Recovering/Resolving]
  - Cytomegalovirus infection [Recovering/Resolving]
  - Cardiac failure [Recovering/Resolving]
  - Haemophagocytic lymphohistiocytosis [Recovering/Resolving]
  - Pericardial effusion [Recovering/Resolving]
  - Inflammatory marker increased [Recovering/Resolving]
  - Skin haemorrhage [Recovering/Resolving]
  - Pyrexia [Recovering/Resolving]
  - Renal impairment [Recovering/Resolving]
  - Hepatosplenomegaly [Recovering/Resolving]
  - Oropharyngeal pain [Recovering/Resolving]
  - Anaemia [Recovering/Resolving]
  - Transaminases increased [Recovering/Resolving]
  - Hepatic function abnormal [Recovering/Resolving]
  - Thrombocytopenia [Recovering/Resolving]
  - Mucosal ulceration [Recovering/Resolving]
  - Arthropathy [Recovering/Resolving]
  - General physical health deterioration [Recovering/Resolving]

NARRATIVE: CASE EVENT DATE: 2016
